FAERS Safety Report 21775343 (Version 1)
Quarter: 2022Q4

REPORT INFORMATION
  Report Type: Spontaneous
  Country: US (occurrence: US)
  Receive Date: 20221225
  Receipt Date: 20221225
  Transmission Date: 20230113
  Serious: Yes (Other)
  Sender: FDA-Public Use
  Company Number: US-BIOGEN-2022BI01177539

PATIENT
  Sex: Male

DRUGS (10)
  1. TYSABRI [Suspect]
     Active Substance: NATALIZUMAB
     Indication: Relapsing-remitting multiple sclerosis
     Route: 050
     Dates: start: 2014, end: 20220824
  2. TEGRETOL XR [Concomitant]
     Active Substance: CARBAMAZEPINE
     Indication: Product used for unknown indication
     Dosage: 1 PO BID X 2 DAYS, THEN 1 PO QAM AND 2 PO QHS X 2 DAYS, THEN 2 PO BID
     Route: 050
  3. CYMBALTA [Concomitant]
     Active Substance: DULOXETINE HYDROCHLORIDE
     Indication: Product used for unknown indication
     Dosage: 1 PO QD X 1 WEK, THEN 2 PO QD, TAKE WITH FOOD
     Route: 050
  4. CYANOCOBALAMIN [Concomitant]
     Active Substance: CYANOCOBALAMIN
     Indication: Product used for unknown indication
     Dosage: 1000 MCG/ML?INJECT 1 ML INTRAMUSCULARLY ONCE A MONTH
     Route: 050
  5. Daily Multiple Vitamins [Concomitant]
     Indication: Product used for unknown indication
     Route: 050
  6. ALPRAZOLAM [Concomitant]
     Active Substance: ALPRAZOLAM
     Indication: Product used for unknown indication
     Route: 050
  7. SUBOXONE [Concomitant]
     Active Substance: BUPRENORPHINE HYDROCHLORIDE\NALOXONE HYDROCHLORIDE
     Indication: Product used for unknown indication
     Dosage: 8-2MG EVERY 6 HOURS AS NEEDED
     Route: 050
  8. SOLU-MEDROL [Concomitant]
     Active Substance: METHYLPREDNISOLONE SODIUM SUCCINATE
     Indication: Product used for unknown indication
     Dosage: ADMINISTER 1000 MG OVER 1.5-2 HOURS AS TOLERATED DAILY FOR 2 DAYS
     Route: 050
  9. GABAPENTIN [Concomitant]
     Active Substance: GABAPENTIN
     Indication: Product used for unknown indication
     Route: 050
  10. Johnson and Johnson COVID-19 [Concomitant]
     Indication: COVID-19 prophylaxis
     Route: 050
     Dates: start: 202105

REACTIONS (5)
  - Epilepsy [Unknown]
  - Seizure [Unknown]
  - Road traffic accident [Recovered/Resolved]
  - Transient ischaemic attack [Unknown]
  - Multiple sclerosis [Unknown]

NARRATIVE: CASE EVENT DATE: 20150101
